FAERS Safety Report 5650619-5 (Version None)
Quarter: 2008Q1

REPORT INFORMATION
  Report Type: 
  Country: None (occurrence: None)
  Receive Date: 20080303
  Receipt Date: 20080222
  Transmission Date: 20080703
  Serious: Yes (Other)
  Sender: FDA-Public Use
  Company Number: GXKR2008GB01962

PATIENT
  Age: 51 Year
  Sex: Male
  Weight: 102.3 kg

DRUGS (4)
  1. ATENOLOL [Suspect]
     Dosage: 50 MG, ORAL
     Route: 048
  2. NIFEDIPINE [Suspect]
     Dosage: 30 MG, ORAL
     Route: 048
  3. BENDROFLUAZIDE (BENDROFLUMETHIAZIDE) [Concomitant]
  4. LISINOPRIL [Concomitant]

REACTIONS (2)
  - BACK PAIN [None]
  - IMPAIRED WORK ABILITY [None]
